FAERS Safety Report 13048667 (Version 1)
Quarter: 2016Q4

REPORT INFORMATION
  Report Type: Spontaneous
  Country: US (occurrence: US)
  Receive Date: 20161221
  Receipt Date: 20161221
  Transmission Date: 20170207
  Serious: Yes (Other)
  Sender: FDA-Public Use
  Company Number: US-ASTRAZENECA-2016SF32573

PATIENT
  Age: 60 Year
  Sex: Female
  Weight: 69.4 kg

DRUGS (7)
  1. PROMETHAZINE [Concomitant]
     Active Substance: PROMETHAZINE\PROMETHAZINE HYDROCHLORIDE
     Indication: NAUSEA
     Dates: start: 201110
  2. TRAMADOL. [Concomitant]
     Active Substance: TRAMADOL
     Indication: BACK PAIN
  3. MISOPROSTOL. [Concomitant]
     Active Substance: MISOPROSTOL
     Indication: ULCER
     Dates: start: 201110
  4. MAGNESIUM [Concomitant]
     Active Substance: MAGNESIUM
     Indication: MUSCLE SPASMS
     Dates: start: 20160901
  5. SUCRALFATE. [Concomitant]
     Active Substance: SUCRALFATE
     Indication: ULCER
     Dates: start: 201110
  6. TRAMADOL. [Concomitant]
     Active Substance: TRAMADOL
     Indication: PAIN IN EXTREMITY
  7. NEXIUM [Suspect]
     Active Substance: ESOMEPRAZOLE MAGNESIUM
     Indication: GASTROOESOPHAGEAL REFLUX DISEASE
     Route: 048

REACTIONS (4)
  - Perforated ulcer [Unknown]
  - Ulcer [Unknown]
  - Product quality issue [Unknown]
  - Limb injury [Unknown]

NARRATIVE: CASE EVENT DATE: 201110
